FAERS Safety Report 9514617 (Version 3)
Quarter: 2013Q4

REPORT INFORMATION
  Report Type: Spontaneous
  Country: CA (occurrence: None)
  Receive Date: 20130906
  Receipt Date: 20131129
  Transmission Date: 20140711
  Serious: Yes (Hospitalization, Other)
  Sender: FDA-Public Use
  Company Number: 2013MPI00516

PATIENT
  Age: 28 Year
  Sex: Female
  Weight: 54.9 kg

DRUGS (4)
  1. BRENTUXIMAB VEDOTIN [Suspect]
     Indication: HODGKIN^S DISEASE
     Dosage: QCYCLE
     Route: 042
     Dates: start: 20130529, end: 20130807
  2. DOXORUBICIN (DOXORUBICIN) INJECTION [Suspect]
     Indication: HODGKIN^S DISEASE
     Route: 042
     Dates: start: 20130529, end: 20130807
  3. VINBLASTINE (VINBLASTINE SULFATE) INJECTION [Suspect]
     Indication: HODGKIN^S DISEASE
     Route: 042
     Dates: start: 20130529, end: 20130807
  4. DACARBAZINE (DACARBAZINE) INJECTION [Suspect]
     Indication: HODGKIN^S DISEASE
     Route: 042
     Dates: start: 20130529, end: 20130807

REACTIONS (9)
  - Lung infiltration [None]
  - Pyrexia [None]
  - Cough [None]
  - Dyspnoea [None]
  - Chills [None]
  - Infection [None]
  - Pulmonary oedema [None]
  - Haemorrhage [None]
  - Pneumocystis jirovecii infection [None]
